FAERS Safety Report 4496719-7 (Version None)
Quarter: 2004Q4

REPORT INFORMATION
  Report Type: 
  Country: None (occurrence: None)
  Receive Date: 20041109
  Receipt Date: 20040917
  Transmission Date: 20050328
  Serious: Yes (Hospitalization)
  Sender: FDA-Public Use
  Company Number: JP-MERCK-0409USA01628

PATIENT
  Age: 66 Year
  Sex: Female

DRUGS (3)
  1. SINGULAIR [Suspect]
     Indication: ASTHMA
     Route: 048
     Dates: start: 20030901
  2. THEO-DUR [Concomitant]
     Route: 048
     Dates: start: 20040901
  3. AMLODIN [Concomitant]
     Route: 048
     Dates: start: 20040901

REACTIONS (2)
  - ALLERGIC GRANULOMATOUS ANGIITIS [None]
  - NEUROPATHY PERIPHERAL [None]
